FAERS Safety Report 13653714 (Version 1)
Quarter: 2017Q2

REPORT INFORMATION
  Report Type: Spontaneous
  Country: FR (occurrence: FR)
  Receive Date: 20170614
  Receipt Date: 20170614
  Transmission Date: 20170830
  Serious: Yes (Other)
  Sender: FDA-Public Use
  Company Number: FR-BAYER-2017-110206

PATIENT
  Age: 32 Year
  Sex: Female

DRUGS (1)
  1. MIRENA [Suspect]
     Active Substance: LEVONORGESTREL
     Indication: CHEMICAL CONTRACEPTION
     Dosage: 20 MCG/24HR, CONT
     Route: 015

REACTIONS (9)
  - Abdominal pain [Unknown]
  - Anxiety [Unknown]
  - Vertigo [Unknown]
  - Asthenia [Unknown]
  - Breast pain [Unknown]
  - Tachycardia [Unknown]
  - Gastrointestinal disorder [Unknown]
  - Back pain [Unknown]
  - Headache [Unknown]
